FAERS Safety Report 4791858-5 (Version None)
Quarter: 2005Q4

REPORT INFORMATION
  Report Type: 
  Country: None (occurrence: None)
  Receive Date: 20051007
  Receipt Date: 20050915
  Transmission Date: 20060501
  Serious: Yes (Death)
  Sender: FDA-Public Use
  Company Number: FR-BRISTOL-MYERS SQUIBB COMPANY-13111695

PATIENT
  Age: 50 Year
  Sex: Female
  Weight: 52 kg

DRUGS (4)
  1. ABILIFY [Suspect]
     Indication: SCHIZOPHRENIA
     Route: 048
     Dates: start: 20050628, end: 20050710
  2. LOXAPAC [Concomitant]
     Indication: AGITATION
     Dates: start: 20050707, end: 20050710
  3. LOXAPAC [Concomitant]
     Indication: PATIENT ISOLATION
     Dates: start: 20050707, end: 20050710
  4. LAROXYL [Concomitant]
     Dates: start: 20050707, end: 20050710

REACTIONS (3)
  - BLOOD CULTURE POSITIVE [None]
  - SEPSIS [None]
  - STAPHYLOCOCCAL INFECTION [None]
